FAERS Safety Report 6786274-0 (Version None)
Quarter: 2010Q2

REPORT INFORMATION
  Report Type: 
  Country: None (occurrence: None)
  Receive Date: 20100623
  Receipt Date: 20100611
  Transmission Date: 20101027
  Serious: No
  Sender: FDA-Public Use
  Company Number: US-B.I. PHARMACEUTICALS,INC./RIDGEFIELD-2010-BP-06709BP

PATIENT
  Sex: Male

DRUGS (3)
  1. ZANTAC 150 [Suspect]
     Indication: GASTRITIS
     Dosage: 300 MG
     Route: 048
     Dates: start: 20100529
  2. ZANTAC 75 [Suspect]
     Indication: GASTRITIS
     Dosage: 300 MG
     Route: 048
  3. GI COCKTAIL [Suspect]
     Indication: ABDOMINAL PAIN UPPER
     Route: 042
     Dates: start: 20100501, end: 20100501

REACTIONS (1)
  - DRUG SCREEN POSITIVE [None]
